FAERS Safety Report 20895585 (Version 5)
Quarter: 2023Q1

REPORT INFORMATION
  Report Type: Spontaneous
  Country: US (occurrence: US)
  Receive Date: 20220531
  Receipt Date: 20230217
  Transmission Date: 20230418
  Serious: Yes (Other)
  Sender: FDA-Public Use
  Company Number: US-PFIZER INC-202200777210

PATIENT
  Age: 71 Year
  Sex: Female

DRUGS (1)
  1. IBRANCE [Suspect]
     Active Substance: PALBOCICLIB
     Dosage: 100 MG, CYCLIC (TAKE ON DAY 1 THRU 21 OF EACH 28 DAY CYCLE)

REACTIONS (4)
  - Mental impairment [Unknown]
  - Blood disorder [Unknown]
  - Speech disorder [Unknown]
  - Fatigue [Unknown]
